FAERS Safety Report 9037221 (Version 1)
Quarter: 2013Q1

REPORT INFORMATION
  Report Type: Spontaneous
  Country: US (occurrence: None)
  Receive Date: 20130123
  Receipt Date: 20130123
  Transmission Date: 20140127
  Serious: Yes (Other)
  Sender: FDA-Public Use
  Company Number: None

PATIENT
  Age: 42 Year
  Sex: Male

DRUGS (1)
  1. ERIVEDGE 150MG GENENTECH [Suspect]
     Indication: BASAL CELL CARCINOMA
     Route: 048

REACTIONS (3)
  - Drug hypersensitivity [None]
  - Rash [None]
  - Pruritus [None]
